FAERS Safety Report 8231975-0 (Version None)
Quarter: 2012Q1

REPORT INFORMATION
  Report Type: 
  Country: None (occurrence: None)
  Receive Date: 20120323
  Receipt Date: 20120314
  Transmission Date: 20120608
  Serious: Yes (Hospitalization, Other)
  Sender: FDA-Public Use
  Company Number: US-BAYER-2011-098232

PATIENT
  Age: 17 Year
  Sex: Female
  Weight: 53.968 kg

DRUGS (5)
  1. ZYRTEC [Concomitant]
     Indication: SEASONAL ALLERGY
     Dosage: UNK
     Dates: start: 20010101
  2. MONISTAT [Concomitant]
     Dosage: UNK
  3. DROSPIRENONE AND ETHINYL ESTRADIOL [Suspect]
     Dosage: UNK
     Dates: start: 20100601, end: 20100801
  4. CIPROFLOXACIN HYDROCHLORIDE [Concomitant]
     Indication: URINARY TRACT INFECTION
     Dosage: 250 MG, BID
  5. RANITIDINE [Concomitant]

REACTIONS (6)
  - CHOLELITHIASIS [None]
  - GALLBLADDER INJURY [None]
  - HEPATIC ENZYME INCREASED [None]
  - INJURY [None]
  - PAIN [None]
  - HEPATITIS [None]
